FAERS Safety Report 21358930 (Version 1)
Quarter: 2022Q3

REPORT INFORMATION
  Report Type: Report from Study
  Country: IE (occurrence: IE)
  Receive Date: 20220921
  Receipt Date: 20220921
  Transmission Date: 20221027
  Serious: Yes (Hospitalization)
  Sender: FDA-Public Use
  Company Number: IE-NOVARTISPH-NVSC2022IE170421

PATIENT
  Sex: Female

DRUGS (4)
  1. VOTRIENT [Suspect]
     Active Substance: PAZOPANIB HYDROCHLORIDE
     Indication: Soft tissue sarcoma
     Dosage: 800 MG (ORAL)
     Route: 048
     Dates: start: 20220704
  2. VOTRIENT [Suspect]
     Active Substance: PAZOPANIB HYDROCHLORIDE
     Dosage: 800 MG (ORAL)
     Route: 048
     Dates: start: 20220718
  3. VOTRIENT [Suspect]
     Active Substance: PAZOPANIB HYDROCHLORIDE
     Dosage: 800 MG (ORAL)
     Route: 048
     Dates: end: 20220829
  4. VOTRIENT [Suspect]
     Active Substance: PAZOPANIB HYDROCHLORIDE
     Dosage: 800 MG (ORAL)
     Route: 048

REACTIONS (10)
  - Gastric disorder [Unknown]
  - Abdominal pain [Unknown]
  - Malaise [Unknown]
  - Somnolence [Unknown]
  - Thirst [Unknown]
  - Mass [Unknown]
  - Ageusia [Unknown]
  - Epistaxis [Unknown]
  - Hair colour changes [Unknown]
  - Pain in extremity [Unknown]
